FAERS Safety Report 6257331-2 (Version None)
Quarter: 2009Q3

REPORT INFORMATION
  Report Type: 
  Country: None (occurrence: None)
  Receive Date: 20090706
  Receipt Date: 20090624
  Transmission Date: 20100115
  Serious: Yes (Other)
  Sender: FDA-Public Use
  Company Number: PHHY2009GB25447

PATIENT
  Age: 50 Year
  Sex: Female

DRUGS (2)
  1. CYCLOSPORINE [Suspect]
     Indication: HEART TRANSPLANT
     Dosage: UNK
  2. STEROIDS NOS [Concomitant]
     Indication: HEART TRANSPLANT
     Dosage: UNK

REACTIONS (4)
  - CARDIAC PACEMAKER INSERTION [None]
  - NODAL RHYTHM [None]
  - RENAL IMPAIRMENT [None]
  - SINUS BRADYCARDIA [None]
